FAERS Safety Report 23217372 (Version 1)
Quarter: 2023Q4

REPORT INFORMATION
  Report Type: Spontaneous
  Country: BR (occurrence: BR)
  Receive Date: 20231122
  Receipt Date: 20231122
  Transmission Date: 20240110
  Serious: Yes (Other)
  Sender: FDA-Public Use
  Company Number: BR-JNJFOC-20231142275

PATIENT
  Sex: Male

DRUGS (2)
  1. SPRAVATO [Suspect]
     Active Substance: ESKETAMINE
     Indication: Product used for unknown indication
     Dosage: 87 VIALS OF THE FIRST PROTOCOL
  2. SPRAVATO [Suspect]
     Active Substance: ESKETAMINE
     Dosage: SECOND PROTOCOL WITH SPRAVATO

REACTIONS (3)
  - Suicidal ideation [Not Recovered/Not Resolved]
  - Malaise [Recovered/Resolved]
  - Therapeutic product effect decreased [Unknown]
